FAERS Safety Report 6286923-X (Version None)
Quarter: 2009Q3

REPORT INFORMATION
  Report Type: 
  Country: None (occurrence: None)
  Receive Date: 20090724
  Receipt Date: 20090710
  Transmission Date: 20100115
  Serious: Yes (Life-Threatening)
  Sender: FDA-Public Use
  Company Number: DSJ-2009-08149

PATIENT
  Age: 83 Year
  Sex: Male
  Weight: 63 kg

DRUGS (11)
  1. OLMESARTAN MEDOXOMIL [Suspect]
     Indication: HYPERTENSION
     Dosage: 20 MG (20 MG,  1 IN 1 D),PER ORAL; 40 MG (40 MG,1 IN 1 D),PER ORAL
     Route: 048
     Dates: start: 20090611, end: 20090618
  2. NORVASC [Concomitant]
  3. OPALMON (LIMAPROST) (LIMAPROST) [Concomitant]
  4. LASIX [Concomitant]
  5. MILLIS (GLYCERYL TRINITRATE) (POULTICE OR PATCH) [Concomitant]
  6. EUGLUCON (GLIBENCLAMIDE) (GLIBENCLAMIDE) [Concomitant]
  7. BASEN OD (VOGLIBOSE) (VOGLIBOSE) [Concomitant]
  8. METFORMIN HYDROCHLORIDE [Concomitant]
  9. MUCOSAL-L (AMBROXOL HYDROCHLORIDE) [Concomitant]
  10. MAGMITT (MAGNESIUM OXIDE) [Concomitant]
  11. SENNOSIDE (SENNOSIDE A+B CALCIUM) [Concomitant]

REACTIONS (3)
  - DRUG INEFFECTIVE [None]
  - HYPOGLYCAEMIA [None]
  - MALAISE [None]
